FAERS Safety Report 18999314 (Version 1)
Quarter: 2021Q1

REPORT INFORMATION
  Report Type: Spontaneous
  Country: US (occurrence: US)
  Receive Date: 20210311
  Receipt Date: 20210311
  Transmission Date: 20210420
  Serious: No
  Sender: FDA-Public Use
  Company Number: US-PFIZER INC-2020165671

PATIENT
  Age: 64 Year
  Sex: Male

DRUGS (3)
  1. RAPAMUNE [Suspect]
     Active Substance: SIROLIMUS
     Dosage: UNK
  2. RAPAMUNE [Suspect]
     Active Substance: SIROLIMUS
     Indication: STEM CELL TRANSPLANT
     Dosage: 2 MG, DAILY (0.5 MG TABLET 4 TABS EVERY EVENING)
     Route: 048
  3. RAPAMUNE [Suspect]
     Active Substance: SIROLIMUS
     Dosage: 1 MG, DAILY (2 TABLETS DAILY)
     Route: 048

REACTIONS (3)
  - Off label use [Unknown]
  - Condition aggravated [Unknown]
  - Product dose omission issue [Unknown]
